FAERS Safety Report 6879408-0 (Version None)
Quarter: 2010Q3

REPORT INFORMATION
  Report Type: 
  Country: None (occurrence: None)
  Receive Date: 20100728
  Receipt Date: 20100716
  Transmission Date: 20110219
  Serious: Yes (Hospitalization)
  Sender: FDA-Public Use
  Company Number: US-JNJFOC-20100705835

PATIENT
  Sex: Male
  Weight: 101.79 kg

DRUGS (22)
  1. GOLIMUMAB [Suspect]
     Indication: RHEUMATOID ARTHRITIS
     Route: 058
  2. GOLIMUMAB [Suspect]
     Route: 058
  3. PLACEBO [Suspect]
     Indication: RHEUMATOID ARTHRITIS
     Route: 058
  4. METHOTREXATE [Suspect]
     Indication: RHEUMATOID ARTHRITIS
     Route: 048
  5. METHOTREXATE [Suspect]
     Route: 048
  6. METHOTREXATE [Suspect]
     Route: 048
  7. METHOTREXATE [Concomitant]
     Route: 048
  8. LOTENSIN (BENAZEPRIL HCL) [Concomitant]
     Route: 048
  9. BENAZEPRIL HYDROCHLORIDE [Concomitant]
     Route: 048
  10. CARDURA [Concomitant]
     Route: 048
  11. FOLIC ACID [Concomitant]
     Route: 048
  12. ASPIRIN [Concomitant]
     Route: 048
  13. PREDNISONE [Concomitant]
     Route: 048
  14. CIALIS [Concomitant]
     Route: 048
  15. PEPCID AC [Concomitant]
     Route: 048
  16. LORATADINE [Concomitant]
     Route: 048
  17. PREVACID [Concomitant]
     Route: 048
  18. SIMETHICONE [Concomitant]
     Route: 048
  19. TRAMADOL HYDROCHLORIDE [Concomitant]
     Route: 048
  20. LEVSIN SL [Concomitant]
     Route: 048
  21. VICODIN [Concomitant]
     Route: 048
  22. FLONASE [Concomitant]
     Route: 045

REACTIONS (19)
  - AORTIC ARTERIOSCLEROSIS [None]
  - ARTERIOSCLEROSIS CORONARY ARTERY [None]
  - BACK PAIN [None]
  - BLOOD CALCIUM DECREASED [None]
  - CHILLS [None]
  - HEPATIC CYST [None]
  - INFECTION [None]
  - INTERVERTEBRAL DISC DEGENERATION [None]
  - PERICARDIAL EFFUSION [None]
  - PERIODIC LIMB MOVEMENT DISORDER [None]
  - PLATELET COUNT DECREASED [None]
  - PLEURAL EFFUSION [None]
  - PNEUMONIA [None]
  - PYREXIA [None]
  - RED CELL DISTRIBUTION WIDTH INCREASED [None]
  - SLEEP APNOEA SYNDROME [None]
  - SPINAL COLUMN STENOSIS [None]
  - SPINAL COMPRESSION FRACTURE [None]
  - SPINAL OSTEOARTHRITIS [None]
